FAERS Safety Report 10056185 (Version 2)
Quarter: 2014Q2

REPORT INFORMATION
  Report Type: Spontaneous
  Country: US (occurrence: US)
  Receive Date: 20140403
  Receipt Date: 20140505
  Transmission Date: 20141212
  Serious: No
  Sender: FDA-Public Use
  Company Number: US-B.I. PHARMACEUTICALS,INC./RIDGEFIELD-2014-BI-12959BP

PATIENT
  Age: 78 Year
  Sex: Female

DRUGS (2)
  1. COMBIVENT [Suspect]
     Indication: ASTHMA
     Dosage: STRENGTH: 20 MCG / 100 MCG
     Route: 055
  2. ADVAIR [Concomitant]
     Indication: ASTHMA
     Dosage: FORMULATION: INHALATION SPRAY
     Route: 055

REACTIONS (3)
  - Bronchitis [Not Recovered/Not Resolved]
  - Off label use [Unknown]
  - Product quality issue [Recovered/Resolved]
